FAERS Safety Report 7433748-5 (Version None)
Quarter: 2011Q2

REPORT INFORMATION
  Report Type: 
  Country: None (occurrence: None)
  Receive Date: 20110424
  Receipt Date: 20110419
  Transmission Date: 20111010
  Serious: No
  Sender: FDA-Public Use
  Company Number: US-B.I. PHARMACEUTICALS,INC./RIDGEFIELD-2011-BP-06176BP

PATIENT
  Sex: Male

DRUGS (10)
  1. TERAZOSIN [Concomitant]
     Indication: URINARY RETENTION
     Dosage: 10 MG
  2. ZOCOR [Concomitant]
     Indication: BLOOD CHOLESTEROL INCREASED
     Dosage: 10 MG
  3. METFORMIN [Concomitant]
     Indication: BLOOD CHOLESTEROL INCREASED
     Dosage: 500 MG
  4. ASACOL [Concomitant]
     Indication: COLITIS
     Dosage: 2400 MG
  5. AMIODARONE [Concomitant]
     Indication: ATRIAL FIBRILLATION
  6. LISINOPRIL [Concomitant]
     Indication: HYPERTENSION
     Dosage: 40 MG
  7. AVODART [Concomitant]
     Indication: PROSTATOMEGALY
  8. PRADAXA [Suspect]
     Indication: ATRIAL FIBRILLATION
     Dosage: 300 MG
     Route: 048
     Dates: start: 20110213
  9. METOPROLOL [Concomitant]
     Indication: ATRIAL FIBRILLATION
     Dosage: 100 MG
  10. PROTONIX [Concomitant]
     Indication: COLITIS

REACTIONS (3)
  - FEELING OF BODY TEMPERATURE CHANGE [None]
  - DIARRHOEA [None]
  - NAUSEA [None]
